FAERS Safety Report 22063158 (Version 1)
Quarter: 2023Q1

REPORT INFORMATION
  Report Type: Spontaneous
  Country: GB (occurrence: GB)
  Receive Date: 20230306
  Receipt Date: 20230306
  Transmission Date: 20230417
  Serious: Yes (Death, Other)
  Sender: FDA-Public Use
  Company Number: GB-STRIDES ARCOLAB LIMITED-2023SP003177

PATIENT
  Age: 48 Year
  Sex: Female

DRUGS (6)
  1. ETOPOSIDE [Suspect]
     Active Substance: ETOPOSIDE
     Indication: Ependymoma
     Dosage: UNK; SYSTEMIC
     Route: 050
  2. ETOPOSIDE [Suspect]
     Active Substance: ETOPOSIDE
     Indication: Metastasis
  3. CARBOPLATIN [Suspect]
     Active Substance: CARBOPLATIN
     Indication: Ependymoma
     Dosage: UNK; SYSTEMIC
     Route: 050
  4. CARBOPLATIN [Suspect]
     Active Substance: CARBOPLATIN
     Indication: Metastasis
  5. TEMOZOLOMIDE [Suspect]
     Active Substance: TEMOZOLOMIDE
     Indication: Ependymoma
     Dosage: UNK; INITIAL DOSE NOT STATED
     Route: 048
  6. TEMOZOLOMIDE [Suspect]
     Active Substance: TEMOZOLOMIDE
     Indication: Metastasis
     Dosage: 75 MILLIGRAM/SQ. METER, CYCLICAL; ONCE DAILY ON DAYS 1-7 OF EACH 21-DAYS CYCLE (COMBINATION OF OLAPA
     Route: 048

REACTIONS (2)
  - COVID-19 [Fatal]
  - Drug ineffective for unapproved indication [Unknown]
